FAERS Safety Report 22057540 (Version 1)
Quarter: 2023Q1

REPORT INFORMATION
  Report Type: Report from Study
  Country: FR (occurrence: FR)
  Receive Date: 20230303
  Receipt Date: 20230303
  Transmission Date: 20230417
  Serious: Yes (Other)
  Sender: FDA-Public Use
  Company Number: FR-JNJFOC-20230250374

PATIENT
  Sex: Male

DRUGS (1)
  1. ZYTIGA [Suspect]
     Active Substance: ABIRATERONE ACETATE
     Indication: Prostate cancer metastatic
     Route: 048

REACTIONS (25)
  - Neuropathy peripheral [Unknown]
  - Back pain [Unknown]
  - Pain in extremity [Unknown]
  - Decreased appetite [Unknown]
  - Hypokalaemia [Unknown]
  - Fatigue [Unknown]
  - Hypertension [Unknown]
  - Nausea [Unknown]
  - Anaemia [Unknown]
  - Diarrhoea [Unknown]
  - Rash [Unknown]
  - Constipation [Unknown]
  - Liver function test increased [Unknown]
  - Vomiting [Unknown]
  - Oedema peripheral [Unknown]
  - Blood creatinine increased [Unknown]
  - Arthralgia [Unknown]
  - Dysgeusia [Unknown]
  - Dyspnoea [Unknown]
  - Weight decreased [Unknown]
  - Dizziness [Unknown]
  - Headache [Unknown]
  - Cough [Unknown]
  - Insomnia [Unknown]
  - Alopecia [Unknown]
